FAERS Safety Report 11199597 (Version 1)
Quarter: 2015Q2

REPORT INFORMATION
  Report Type: Spontaneous
  Country: IL (occurrence: IL)
  Receive Date: 20150618
  Receipt Date: 20150618
  Transmission Date: 20150821
  Serious: Yes (Hospitalization)
  Sender: FDA-Public Use
  Company Number: IL-ASTRAZENECA-2015SE57167

PATIENT
  Age: 81 Year
  Sex: Male

DRUGS (2)
  1. CARDILOC [Suspect]
     Active Substance: BISOPROLOL FUMARATE
     Route: 065
  2. BRILINTA [Suspect]
     Active Substance: TICAGRELOR
     Indication: ACUTE MYOCARDIAL INFARCTION
     Route: 048

REACTIONS (3)
  - Atrioventricular block [Recovered/Resolved]
  - Asthenia [Unknown]
  - Dyspnoea [Recovered/Resolved]
